FAERS Safety Report 6290587-9 (Version None)
Quarter: 2009Q3

REPORT INFORMATION
  Report Type: 
  Country: None (occurrence: None)
  Receive Date: 20090730
  Receipt Date: 20090723
  Transmission Date: 20100115
  Serious: No
  Sender: FDA-Public Use
  Company Number: US-JNJFOC-20080703948

PATIENT
  Sex: Female
  Weight: 58.97 kg

DRUGS (4)
  1. DURAGESIC-100 [Suspect]
     Route: 062
  2. DURAGESIC-100 [Suspect]
     Indication: PAIN
     Route: 062
  3. SOMA [Concomitant]
     Indication: PAIN
     Route: 048
  4. ROXYCODONE [Concomitant]
     Indication: PAIN
     Route: 048

REACTIONS (7)
  - ADVERSE EVENT [None]
  - DRUG DOSE OMISSION [None]
  - DRUG INEFFECTIVE [None]
  - ILL-DEFINED DISORDER [None]
  - PAIN [None]
  - PRODUCT QUALITY ISSUE [None]
  - WRONG TECHNIQUE IN DRUG USAGE PROCESS [None]
